FAERS Safety Report 8761251 (Version 1)
Quarter: 2012Q4

REPORT INFORMATION
  Report Type: 
  Country: CH (occurrence: CH)
  Receive Date: 20120830
  Receipt Date: 20120830
  Transmission Date: 20130627
  Serious: Yes (Hospitalization)
  Sender: FDA-Public Use
  Company Number: CH-GLAXOSMITHKLINE-B0826409A

PATIENT
  Age: 65 Year
  Sex: Male
  Weight: 90 kg

DRUGS (6)
  1. CLOBETASOL [Suspect]
     Indication: TOXIC SKIN ERUPTION
     Dosage: 30G Per day
     Route: 065
     Dates: start: 20120204, end: 20120509
  2. BETAMETHASONE DIPROPIONATE\GENTAMICIN SULFATE [Suspect]
     Indication: TOXIC SKIN ERUPTION
     Dosage: 10G Per day
     Route: 065
     Dates: start: 20110915, end: 20120115
  3. EXFORGE [Concomitant]
     Indication: ESSENTIAL HYPERTENSION
     Route: 048
     Dates: end: 201207
  4. SITAGLIPTIN PHOSPHATE [Concomitant]
     Indication: DIABETES MELLITUS
     Dosage: 100MG Per day
     Route: 048
     Dates: start: 2012
  5. METFORMINE [Concomitant]
     Indication: DIABETES MELLITUS
     Route: 048
     Dates: end: 20120121
  6. PRAVASTATINE [Concomitant]
     Indication: HYPERLIPIDAEMIA
     Route: 048
     Dates: end: 20120121

REACTIONS (6)
  - Cushing^s syndrome [Recovering/Resolving]
  - Addison^s disease [Recovering/Resolving]
  - Medication error [Recovering/Resolving]
  - Accidental overdose [None]
  - Acarodermatitis [None]
  - Perivascular dermatitis [None]
